FAERS Safety Report 10664867 (Version 1)
Quarter: 2014Q4

REPORT INFORMATION
  Report Type: Spontaneous
  Country: US (occurrence: US)
  Receive Date: 20141219
  Receipt Date: 20141219
  Transmission Date: 20150529
  Serious: No
  Sender: FDA-Public Use
  Company Number: US-BAUSCH-BL-2014-005721

PATIENT
  Sex: Male

DRUGS (1)
  1. XENAZINE [Suspect]
     Active Substance: TETRABENAZINE
     Indication: HUNTINGTON^S DISEASE
     Dosage: 1/2 TABLETS EVERY MORNING, 1/2  IN THE AFTERNOON, AND 1 TABLET EVERY EVENING
     Route: 048
     Dates: start: 20140409

REACTIONS (3)
  - Somnolence [Not Recovered/Not Resolved]
  - Increased appetite [Not Recovered/Not Resolved]
  - Medication error [Not Recovered/Not Resolved]

NARRATIVE: CASE EVENT DATE: 2014
